FAERS Safety Report 8256418-2 (Version None)
Quarter: 2012Q2

REPORT INFORMATION
  Report Type: 
  Country: None (occurrence: None)
  Receive Date: 20120402
  Receipt Date: 20120402
  Transmission Date: 20120825
  Serious: No
  Sender: FDA-Public Use
  Company Number: None

PATIENT
  Age: 51 Year
  Sex: Male
  Weight: 79.5 kg

DRUGS (1)
  1. TELAPREVIR [Suspect]
     Indication: HEPATITIS C
     Dosage: 2 TAB TID PO
     Route: 048
     Dates: start: 20120222, end: 20120316

REACTIONS (6)
  - RASH PRURITIC [None]
  - VOMITING [None]
  - RASH PAPULAR [None]
  - QUALITY OF LIFE DECREASED [None]
  - DRUG ERUPTION [None]
  - NAUSEA [None]
